FAERS Safety Report 9893464 (Version 3)
Quarter: 2014Q2

REPORT INFORMATION
  Report Type: Spontaneous
  Country: IT (occurrence: IT)
  Receive Date: 20140213
  Receipt Date: 20140410
  Transmission Date: 20141212
  Serious: Yes (Hospitalization)
  Sender: FDA-Public Use
  Company Number: IT-BRISTOL-MYERS SQUIBB COMPANY-19888155

PATIENT
  Age: 80 Year
  Sex: Female

DRUGS (2)
  1. COUMADIN TABS 5 MG [Suspect]
     Indication: ANTICOAGULANT THERAPY
     Route: 048
     Dates: start: 20130924, end: 20131106
  2. COMBISARTAN [Concomitant]
     Indication: HYPERTENSION
     Route: 048
     Dates: start: 20080101, end: 20131106

REACTIONS (2)
  - Subdural haematoma [Recovered/Resolved]
  - Headache [Recovered/Resolved]
